FAERS Safety Report 4668150-2 (Version None)
Quarter: 2005Q2

REPORT INFORMATION
  Report Type: 
  Country: None (occurrence: None)
  Receive Date: 20050523
  Receipt Date: 20050224
  Transmission Date: 20051028
  Serious: Yes (Other)
  Sender: FDA-Public Use
  Company Number: PHBS2005US02926

PATIENT
  Age: 53 Year
  Sex: Female

DRUGS (4)
  1. PAMIDRONATE DISODIUM [Suspect]
     Indication: BREAST CANCER METASTATIC
     Dosage: 90 MG ^PER WEEK^
     Route: 042
  2. DEXAMETHASONE [Suspect]
     Dosage: UNK, UNK
     Route: 065
  3. DOCETAXEL [Suspect]
     Dosage: 30 MG, QW
     Route: 065
  4. DOLASETRON MESILATE [Suspect]
     Dosage: 50 MG, QW
     Route: 065

REACTIONS (7)
  - BONE DISORDER [None]
  - IMPAIRED HEALING [None]
  - INFECTION [None]
  - ORAL SURGERY [None]
  - OSTEONECROSIS [None]
  - TOOTH EXTRACTION [None]
  - WOUND DEBRIDEMENT [None]
